FAERS Safety Report 18383500 (Version 3)
Quarter: 2021Q1

REPORT INFORMATION
  Report Type: Report from Study
  Country: US (occurrence: US)
  Receive Date: 20201014
  Receipt Date: 20210115
  Transmission Date: 20210419
  Serious: Yes (Hospitalization)
  Sender: FDA-Public Use
  Company Number: NVSC2020US272566

PATIENT
  Sex: Male
  Weight: 9 kg

DRUGS (1)
  1. ZOLGENSMA [Suspect]
     Active Substance: ONASEMNOGENE ABEPARVOVEC-XIOI
     Indication: SPINAL MUSCULAR ATROPHY
     Dosage: UNK
     Route: 042
     Dates: start: 20200916, end: 20200916

REACTIONS (3)
  - Oxygen saturation decreased [Unknown]
  - Bronchiolitis [Unknown]
  - Dyspnoea [Unknown]
